APPROVED DRUG PRODUCT: DROPERIDOL
Active Ingredient: DROPERIDOL
Strength: 2.5MG/ML
Dosage Form/Route: INJECTABLE;INJECTION
Application: A070992 | Product #001
Applicant: ABRAXIS PHARMACEUTICAL PRODUCTS
Approved: Nov 17, 1986 | RLD: No | RS: No | Type: DISCN